FAERS Safety Report 5306704-0 (Version None)
Quarter: 2007Q2

REPORT INFORMATION
  Report Type: 
  Country: None (occurrence: None)
  Receive Date: 20070424
  Receipt Date: 20070416
  Transmission Date: 20071010
  Serious: Yes (Hospitalization)
  Sender: FDA-Public Use
  Company Number: JP-PFIZER INC-2007031067

PATIENT
  Age: 69 Year
  Sex: Female

DRUGS (3)
  1. AZULFIDINE EN-TABS [Suspect]
     Indication: RHEUMATOID ARTHRITIS
     Route: 048
  2. RHEUMATREX [Concomitant]
     Route: 048
  3. PREDNISOLONE [Concomitant]

REACTIONS (1)
  - INFECTIOUS MONONUCLEOSIS [None]
